FAERS Safety Report 14820471 (Version 1)
Quarter: 2018Q2

REPORT INFORMATION
  Report Type: Spontaneous
  Country: GB (occurrence: US)
  Receive Date: 20180420
  Receipt Date: 20180420
  Transmission Date: 20180711
  Serious: Yes (Hospitalization)
  Sender: FDA-Public Use
  Company Number: None

PATIENT
  Age: 39 Year
  Sex: Female
  Weight: 87.3 kg

DRUGS (1)
  1. NOLVADEX [Suspect]
     Active Substance: TAMOXIFEN CITRATE
     Dates: end: 20180401

REACTIONS (4)
  - Abdominal pain [None]
  - Small intestinal obstruction [None]
  - Vomiting [None]
  - Ascites [None]

NARRATIVE: CASE EVENT DATE: 20180402
